FAERS Safety Report 6266558-5 (Version None)
Quarter: 2009Q3

REPORT INFORMATION
  Report Type: 
  Country: None (occurrence: None)
  Receive Date: 20090710
  Receipt Date: 20090707
  Transmission Date: 20100115
  Serious: Yes (Other)
  Sender: FDA-Public Use
  Company Number: A0795717A

PATIENT
  Age: 62 Year
  Sex: Female

DRUGS (1)
  1. UREA HYDROGEN PEROXIDE (FORMULATION UKNOWN) (UREA HYDROGEN PEROXIDE) [Suspect]

REACTIONS (2)
  - EAR DISCOMFORT [None]
  - HEARING IMPAIRED [None]
